FAERS Safety Report 6214337-7 (Version None)
Quarter: 2009Q2

REPORT INFORMATION
  Report Type: 
  Country: None (occurrence: None)
  Receive Date: 20090604
  Receipt Date: 20090528
  Transmission Date: 20091009
  Serious: Yes (Other)
  Sender: FDA-Public Use
  Company Number: US-BAYER-200921998NA

PATIENT
  Age: 51 Year
  Sex: Female

DRUGS (1)
  1. MIRENA [Suspect]
     Indication: CONTRACEPTION
     Dosage: CONTINUOUS
     Route: 015
     Dates: start: 20090527, end: 20090527

REACTIONS (5)
  - COMPLICATION OF DEVICE INSERTION [None]
  - DIZZINESS [None]
  - PRESYNCOPE [None]
  - PROCEDURAL PAIN [None]
  - UTERINE RUPTURE [None]
